FAERS Safety Report 25518264 (Version 1)
Quarter: 2025Q3

REPORT INFORMATION
  Report Type: Report from Study
  Country: JP (occurrence: JP)
  Receive Date: 20250704
  Receipt Date: 20250704
  Transmission Date: 20251020
  Serious: Yes (Death, Life-Threatening, Hospitalization, Other)
  Sender: TAKEDA
  Company Number: JP-TAKEDA-2025TJP005566

PATIENT
  Age: 85 Year
  Sex: Male

DRUGS (6)
  1. FRUQUINTINIB [Suspect]
     Active Substance: FRUQUINTINIB
     Indication: Colorectal cancer recurrent
     Dates: start: 20250519, end: 20250602
  2. TORSEMIDE [Concomitant]
     Active Substance: TORSEMIDE
  3. LEVOTHYROXINE SODIUM [Concomitant]
     Active Substance: LEVOTHYROXINE SODIUM
  4. KETOTIFEN [Concomitant]
     Active Substance: KETOTIFEN
  5. DOXAZOSIN [Concomitant]
     Active Substance: DOXAZOSIN MESYLATE
  6. AMLODIPINE [Concomitant]
     Active Substance: AMLODIPINE BESYLATE

REACTIONS (7)
  - Colorectal cancer recurrent [Fatal]
  - Hypothyroidism [Not Recovered/Not Resolved]
  - Gastrointestinal perforation [Not Recovered/Not Resolved]
  - Portal vein thrombosis [Unknown]
  - Pneumonia aspiration [Not Recovered/Not Resolved]
  - Wound dehiscence [Unknown]
  - Fungal infection [Unknown]

NARRATIVE: CASE EVENT DATE: 20250606
